FAERS Safety Report 9634208 (Version 3)
Quarter: 2013Q4

REPORT INFORMATION
  Report Type: Spontaneous
  Country: US (occurrence: US)
  Receive Date: 20131021
  Receipt Date: 20131202
  Transmission Date: 20140711
  Serious: Yes (Other)
  Sender: FDA-Public Use
  Company Number: US-PFIZER INC-2013297870

PATIENT
  Age: 55 Year
  Sex: Female

DRUGS (2)
  1. ZOLOFT [Suspect]
     Dosage: UNK
  2. ZOLOFT [Suspect]
     Dosage: 150 MG, DAILY

REACTIONS (2)
  - Suicidal behaviour [Unknown]
  - Drug dispensing error [Unknown]
